FAERS Safety Report 18654620 (Version 3)
Quarter: 2021Q2

REPORT INFORMATION
  Report Type: Spontaneous
  Country: US (occurrence: US)
  Receive Date: 20201223
  Receipt Date: 20210527
  Transmission Date: 20210717
  Serious: Yes (Other)
  Sender: FDA-Public Use
  Company Number: US-GILEAD-2020-0509283

PATIENT
  Age: 64 Year
  Sex: Female
  Weight: 59.87 kg

DRUGS (11)
  1. RENVELA [Concomitant]
     Active Substance: SEVELAMER CARBONATE
  2. ATORVASTATIN [Concomitant]
     Active Substance: ATORVASTATIN
  3. ATRIPLA [Suspect]
     Active Substance: EFAVIRENZ\EMTRICITABINE\TENOFOVIR DISOPROXIL FUMARATE
     Dosage: UNK
     Route: 065
     Dates: start: 201302, end: 201611
  4. TIVICAY [Concomitant]
     Active Substance: DOLUTEGRAVIR SODIUM
  5. DOLUTEGRAVIR [Concomitant]
     Active Substance: DOLUTEGRAVIR
  6. ESCITALOPRAM [Concomitant]
     Active Substance: ESCITALOPRAM OXALATE
  7. ATRIPLA [Suspect]
     Active Substance: EFAVIRENZ\EMTRICITABINE\TENOFOVIR DISOPROXIL FUMARATE
     Indication: HIV INFECTION
     Dosage: UNK
     Route: 048
     Dates: start: 2014
  8. AMLODIPINE [Concomitant]
     Active Substance: AMLODIPINE BESYLATE
  9. METOPROLOL TARTRATE. [Concomitant]
     Active Substance: METOPROLOL TARTRATE
  10. LANTUS [Concomitant]
     Active Substance: INSULIN GLARGINE
  11. ALPRAZOLAM. [Concomitant]
     Active Substance: ALPRAZOLAM

REACTIONS (6)
  - End stage renal disease [Not Recovered/Not Resolved]
  - Renal failure [Unknown]
  - Anxiety [Unknown]
  - Pain [Unknown]
  - Anhedonia [Unknown]
  - Emotional distress [Unknown]

NARRATIVE: CASE EVENT DATE: 20161101
